FAERS Safety Report 6641516-7 (Version None)
Quarter: 2010Q1

REPORT INFORMATION
  Report Type: 
  Country: None (occurrence: None)
  Receive Date: 20100317
  Receipt Date: 20100317
  Transmission Date: 20100710
  Serious: Yes (Other)
  Sender: FDA-Public Use
  Company Number: None

PATIENT
  Age: 57 Year
  Sex: Female

DRUGS (8)
  1. VANCOMYCIN HCL [Suspect]
     Indication: INFECTION
     Dosage: 1500 MG IV Q12HOURS
     Route: 042
     Dates: start: 20090925, end: 20090929
  2. DOCUSATE [Concomitant]
  3. ASPIRIN [Concomitant]
  4. FLUTICASONE PROPIONATE [Concomitant]
  5. HYDROCHLOROTHIAZIDE [Concomitant]
  6. LORAZEPAM [Concomitant]
  7. SERTRALINE [Concomitant]
  8. ZOLPIDEM [Concomitant]

REACTIONS (3)
  - ARTHRALGIA [None]
  - DYSPNOEA EXERTIONAL [None]
  - OEDEMA PERIPHERAL [None]
